FAERS Safety Report 6566330-2 (Version None)
Quarter: 2010Q1

REPORT INFORMATION
  Report Type: 
  Country: None (occurrence: None)
  Receive Date: 20100202
  Receipt Date: 20100128
  Transmission Date: 20100710
  Serious: Yes (Death, Hospitalization)
  Sender: FDA-Public Use
  Company Number: BR-ABBOTT-10P-020-0622969-00

PATIENT
  Sex: Female

DRUGS (3)
  1. HUMIRA [Suspect]
     Indication: RHEUMATOID ARTHRITIS
     Route: 058
  2. CAPTOPRIL [Concomitant]
     Indication: OSTEOARTHRITIS
     Route: 048
     Dates: end: 20091001
  3. GLYCINE MAX [Concomitant]
     Indication: HYPERTENSION
     Route: 048
     Dates: end: 20091001

REACTIONS (2)
  - MYELODYSPLASTIC SYNDROME [None]
  - PNEUMONIA [None]
